FAERS Safety Report 12601057 (Version 1)
Quarter: 2016Q3

REPORT INFORMATION
  Report Type: Report from Study
  Country: US (occurrence: US)
  Receive Date: 20160728
  Receipt Date: 20160728
  Transmission Date: 20161109
  Serious: Yes (Other)
  Sender: FDA-Public Use
  Company Number: US-ROCHE-1803354

PATIENT
  Age: 72 Year
  Sex: Female

DRUGS (1)
  1. VISMODEGIB [Suspect]
     Active Substance: VISMODEGIB
     Indication: SMALL CELL LUNG CANCER
     Route: 048
     Dates: start: 20110222

REACTIONS (2)
  - Oropharyngeal pain [Unknown]
  - White blood cell count decreased [Unknown]
